FAERS Safety Report 6187880-7 (Version None)
Quarter: 2009Q2

REPORT INFORMATION
  Report Type: 
  Country: None (occurrence: None)
  Receive Date: 20090513
  Receipt Date: 20090507
  Transmission Date: 20091009
  Serious: Yes (Life-Threatening)
  Sender: FDA-Public Use
  Company Number: IT-ABBOTT-09P-083-0572078-00

PATIENT
  Sex: Female

DRUGS (1)
  1. HUMIRA [Suspect]
     Indication: CROHN'S DISEASE
     Dosage: CYCLIC
     Route: 058
     Dates: start: 20090424, end: 20090424

REACTIONS (9)
  - ARTHRALGIA [None]
  - DIARRHOEA [None]
  - DYSPNOEA [None]
  - ERYTHEMA [None]
  - MYALGIA [None]
  - NAUSEA [None]
  - PYREXIA [None]
  - VISUAL ACUITY REDUCED [None]
  - VOMITING [None]
